FAERS Safety Report 10517151 (Version 1)
Quarter: 2014Q4

REPORT INFORMATION
  Report Type: Spontaneous
  Country: IT (occurrence: IT)
  Receive Date: 20141014
  Receipt Date: 20141014
  Transmission Date: 20150528
  Serious: Yes (Hospitalization)
  Sender: FDA-Public Use
  Company Number: IT-PFIZER INC-2014279715

PATIENT
  Age: 90 Year
  Sex: Female

DRUGS (12)
  1. LANSOPRAZOLE. [Concomitant]
     Active Substance: LANSOPRAZOLE
     Dosage: UNK
  2. LANTUS [Concomitant]
     Active Substance: INSULIN GLARGINE
     Dosage: UNK
  3. CARDICOR [Concomitant]
     Active Substance: BISOPROLOL
     Dosage: UNK
  4. DIFIX [Concomitant]
     Dosage: UNK
  5. DOXAZOSIN [Concomitant]
     Active Substance: DOXAZOSIN\DOXAZOSIN MESYLATE
     Dosage: UNK
  6. CARDIOASPIRIN [Concomitant]
     Active Substance: ASPIRIN
     Dosage: UNK
  7. TRIATEC [Suspect]
     Active Substance: RAMIPRIL
     Indication: HYPERTENSIVE HEART DISEASE
     Dosage: 5 MG, DAILY
     Route: 048
     Dates: start: 20120101, end: 20140605
  8. FERROGRAD C [Concomitant]
     Active Substance: ASCORBIC ACID\FERROUS SULFATE
     Dosage: UNK
  9. HUMALOG [Concomitant]
     Active Substance: INSULIN LISPRO
     Dosage: UNK
  10. APROVEL [Concomitant]
     Active Substance: IRBESARTAN
     Dosage: UNK
  11. ALLOPURINOL. [Concomitant]
     Active Substance: ALLOPURINOL
     Dosage: UNK
  12. CALCIUM CARBONATE. [Concomitant]
     Active Substance: CALCIUM CARBONATE
     Dosage: UNK

REACTIONS (2)
  - Hyperkalaemia [Recovering/Resolving]
  - Arrhythmia [Recovering/Resolving]

NARRATIVE: CASE EVENT DATE: 20140605
